FAERS Safety Report 7729085-1 (Version None)
Quarter: 2011Q3

REPORT INFORMATION
  Report Type: 
  Country: None (occurrence: None)
  Receive Date: 20110906
  Receipt Date: 20110825
  Transmission Date: 20111222
  Serious: Yes (Other)
  Sender: FDA-Public Use
  Company Number: US-US-EMD SERONO, INC.-7079415

PATIENT
  Sex: Female

DRUGS (2)
  1. REBIF [Suspect]
     Indication: MULTIPLE SCLEROSIS
     Dates: start: 20050830
  2. REBIF [Suspect]
     Route: 058
     Dates: end: 20060430

REACTIONS (3)
  - ASTHMA [None]
  - CROHN'S DISEASE [None]
  - MOBILITY DECREASED [None]
